FAERS Safety Report 7740620-X (Version None)
Quarter: 2011Q3

REPORT INFORMATION
  Report Type: 
  Country: None (occurrence: None)
  Receive Date: 20110909
  Receipt Date: 20110902
  Transmission Date: 20111222
  Serious: Yes (Other)
  Sender: FDA-Public Use
  Company Number: PR-PFIZER INC-2008054397

PATIENT
  Age: 30 Year
  Sex: Female

DRUGS (4)
  1. FORTOVASE [Suspect]
     Indication: HIV INFECTION
     Route: 048
     Dates: start: 20080301
  2. INVIRASE [Suspect]
     Indication: HIV INFECTION
     Route: 048
     Dates: start: 20080301
  3. VIRACEPT [Suspect]
     Indication: HIV INFECTION
     Route: 048
  4. COMBIVIR [Suspect]
     Indication: HIV INFECTION
     Route: 048

REACTIONS (1)
  - ABORTION SPONTANEOUS [None]
